FAERS Safety Report 8797745 (Version 2)
Quarter: 2012Q4

REPORT INFORMATION
  Report Type: 
  Country: JP (occurrence: JP)
  Receive Date: 20120919
  Receipt Date: 20120925
  Transmission Date: 20130627
  Serious: Yes (Other)
  Sender: FDA-Public Use
  Company Number: JP-ROCHE-1130190

PATIENT
  Age: 34 Year
  Sex: Male
  Weight: 176 kg

DRUGS (2)
  1. ROCEPHIN [Suspect]
     Indication: SEPSIS
     Route: 042
  2. CLINDAMYCIN [Concomitant]
     Indication: SEPSIS
     Route: 065

REACTIONS (2)
  - Cerebral artery embolism [Unknown]
  - Drug eruption [Unknown]
